FAERS Safety Report 7295525-8 (Version None)
Quarter: 2011Q1

REPORT INFORMATION
  Report Type: 
  Country: None (occurrence: None)
  Receive Date: 20110216
  Receipt Date: 20101202
  Transmission Date: 20110831
  Serious: No
  Sender: FDA-Public Use
  Company Number: US-ABBOTT-10P-163-0689148-00

PATIENT
  Sex: Male
  Weight: 70.37 kg

DRUGS (2)
  1. SIMCOR [Suspect]
     Indication: HYPERLIPIDAEMIA
     Dosage: DAILY AT BEDTIME
     Dates: start: 20101125
  2. ASPIRIN [Concomitant]
     Indication: PRODUCT USED FOR UNKNOWN INDICATION

REACTIONS (5)
  - VOMITING [None]
  - NAUSEA [None]
  - URINE OUTPUT INCREASED [None]
  - BLOOD GLUCOSE INCREASED [None]
  - POLLAKIURIA [None]
